FAERS Safety Report 6300848-2 (Version None)
Quarter: 2009Q3

REPORT INFORMATION
  Report Type: 
  Country: None (occurrence: None)
  Receive Date: 20090807
  Receipt Date: 20090728
  Transmission Date: 20100115
  Serious: Yes (Hospitalization)
  Sender: FDA-Public Use
  Company Number: US-PFIZER INC-2009246952

PATIENT

DRUGS (7)
  1. EXEMESTANE [Suspect]
     Indication: BREAST CANCER
     Dosage: 25 MG, 1X/DAY
     Route: 048
     Dates: start: 20070820, end: 20090709
  2. TRIPTORELIN [Suspect]
     Indication: BREAST CANCER
     Dosage: 3.75 MG, EVERY 4 WEEKS
     Route: 030
     Dates: start: 20070820, end: 20090624
  3. ALPRAZOLAM [Concomitant]
     Dosage: UNK
     Route: 048
     Dates: start: 20070801
  4. DULOXETINE [Concomitant]
     Dosage: UNK
     Dates: start: 20060401
  5. GABAPENTIN [Concomitant]
     Dosage: UNK
     Dates: start: 20080901
  6. METOPROLOL [Concomitant]
     Dosage: UNK
     Dates: start: 20081001
  7. TRAMADOL [Concomitant]
     Dosage: UNK
     Dates: start: 20050101

REACTIONS (1)
  - PAPILLOEDEMA [None]
